FAERS Safety Report 10435768 (Version 1)
Quarter: 2014Q3

REPORT INFORMATION
  Report Type: Spontaneous
  Country: US (occurrence: CA)
  Receive Date: 20140908
  Receipt Date: 20140908
  Transmission Date: 20150326
  Serious: Yes (Hospitalization, Other)
  Sender: FDA-Public Use
  Company Number: 2014SP005186

PATIENT
  Age: 51 Year
  Sex: Female

DRUGS (10)
  1. GABAPENTIN. [Concomitant]
     Active Substance: GABAPENTIN
  2. METHOTREXATE [Suspect]
     Active Substance: METHOTREXATE
     Indication: PRODUCT USED FOR UNKNOWN INDICATION
  3. LORAZEPAM. [Concomitant]
     Active Substance: LORAZEPAM
  4. ENBREL [Suspect]
     Active Substance: ETANERCEPT
     Indication: PSORIATIC ARTHROPATHY
     Dates: start: 20050927
  5. NABILONE [Concomitant]
     Active Substance: NABILONE
  6. FOLIC ACID. [Concomitant]
     Active Substance: FOLIC ACID
  7. MIRTAZAPINE. [Concomitant]
     Active Substance: MIRTAZAPINE
  8. MELOXICAM. [Concomitant]
     Active Substance: MELOXICAM
  9. TEMAZEPAM. [Concomitant]
     Active Substance: TEMAZEPAM
  10. CODEIN [Concomitant]
     Active Substance: CODEINE

REACTIONS (9)
  - Infection susceptibility increased [Not Recovered/Not Resolved]
  - Burning sensation [Not Recovered/Not Resolved]
  - Lymphadenopathy [Not Recovered/Not Resolved]
  - Overdose [Not Recovered/Not Resolved]
  - Localised infection [Not Recovered/Not Resolved]
  - Sepsis [Not Recovered/Not Resolved]
  - Arthritis infective [Not Recovered/Not Resolved]
  - Purulent discharge [Not Recovered/Not Resolved]
  - Skin ulcer [Not Recovered/Not Resolved]

NARRATIVE: CASE EVENT DATE: 2011
